FAERS Safety Report 23350754 (Version 1)
Quarter: 2023Q4

REPORT INFORMATION
  Report Type: Spontaneous
  Country: US (occurrence: None)
  Receive Date: 20231228
  Receipt Date: 20231228
  Transmission Date: 20240109
  Serious: Yes (Life-Threatening, Hospitalization)
  Sender: FDA-Public Use
  Company Number: None

PATIENT
  Age: 69 Year
  Sex: Female
  Weight: 81 kg

DRUGS (15)
  1. TAMOXIFEN [Suspect]
     Active Substance: TAMOXIFEN
     Indication: Breast cancer
     Dosage: OTHER QUANTITY : 90 TABLET(S);?FREQUENCY : DAILY;?
     Route: 048
     Dates: start: 20230320, end: 20231021
  2. TAMOXIFEN [Suspect]
     Active Substance: TAMOXIFEN
     Indication: Prophylaxis
  3. GABAPENTIN [Concomitant]
     Active Substance: GABAPENTIN
  4. SINGULAIR [Concomitant]
     Active Substance: MONTELUKAST SODIUM
  5. TROSPIUM CHLORIDE [Concomitant]
  6. ELIQUIS [Concomitant]
     Active Substance: APIXABAN
  7. NUCALA [Concomitant]
     Active Substance: MEPOLIZUMAB
  8. oyster shell/D [Concomitant]
  9. VITAMINS [Concomitant]
     Active Substance: VITAMINS
  10. Stress B Complex [Concomitant]
  11. C [Concomitant]
  12. slo mag 64 [Concomitant]
  13. elemental iron [Concomitant]
  14. azelestine nasal spray [Concomitant]
  15. FLONASE [Concomitant]
     Active Substance: FLUTICASONE PROPIONATE

REACTIONS (9)
  - Arthralgia [None]
  - Deep vein thrombosis [None]
  - Dyspnoea [None]
  - Feeling abnormal [None]
  - Polypectomy [None]
  - Electrocardiogram abnormal [None]
  - Troponin increased [None]
  - Pulmonary embolism [None]
  - Pulmonary artery occlusion [None]

NARRATIVE: CASE EVENT DATE: 20231022
